FAERS Safety Report 25708340 (Version 1)
Quarter: 2025Q3

REPORT INFORMATION
  Report Type: Spontaneous
  Country: JP (occurrence: JP)
  Receive Date: 20250821
  Receipt Date: 20250821
  Transmission Date: 20251021
  Serious: Yes (Death, Other)
  Sender: CHEPLAPHARM
  Company Number: JP-CHEPLA-2025008142

PATIENT
  Age: 66 Year
  Sex: Male

DRUGS (2)
  1. GANCICLOVIR [Suspect]
     Active Substance: GANCICLOVIR
     Indication: Cytomegalovirus enterocolitis
     Route: 042
  2. GANCICLOVIR [Suspect]
     Active Substance: GANCICLOVIR
     Indication: Cytomegalovirus enterocolitis
     Dosage: DAILY DOSE: 2.5 MILLIGRAM
     Route: 042

REACTIONS (2)
  - Hepatic cirrhosis [Fatal]
  - Platelet count decreased [Recovered/Resolved]
